FAERS Safety Report 20559941 (Version 1)
Quarter: 2022Q1

REPORT INFORMATION
  Report Type: Spontaneous
  Country: US (occurrence: None)
  Receive Date: 20220304
  Receipt Date: 20220304
  Transmission Date: 20220423
  Serious: No
  Sender: FDA-Public Use
  Company Number: None

PATIENT
  Age: 45 Year
  Sex: Female
  Weight: 76.5 kg

DRUGS (8)
  1. DEXTROAMPHET SACCHARAT, AMPHET ASPARTATE, DEXTROAMPHET SULFATE AND AMP [Suspect]
     Active Substance: AMPHETAMINE ASPARTATE\AMPHETAMINE SULFATE\DEXTROAMPHETAMINE SACCHARATE\DEXTROAMPHETAMINE SULFATE
     Indication: Attention deficit hyperactivity disorder
     Dosage: FREQUENCY : 3 TIMES A DAY; 1` TABLET?
     Route: 048
  2. Bueneprofin [Concomitant]
  3. IBUPROFEN [Concomitant]
     Active Substance: IBUPROFEN
  4. TYLENOL [Concomitant]
     Active Substance: ACETAMINOPHEN
  5. Ashwaghanda [Concomitant]
  6. FLAXSEED [Concomitant]
     Active Substance: FLAX SEED
  7. IRON [Concomitant]
     Active Substance: IRON
  8. VITAMIN D3 [Concomitant]
     Active Substance: CHOLECALCIFEROL

REACTIONS (6)
  - Manufacturing issue [None]
  - Fatigue [None]
  - Product substitution issue [None]
  - Disturbance in attention [None]
  - Confusional state [None]
  - Feeling abnormal [None]

NARRATIVE: CASE EVENT DATE: 20220103
